FAERS Safety Report 9560185 (Version 4)
Quarter: 2016Q1

REPORT INFORMATION
  Report Type: Spontaneous
  Country: US (occurrence: US)
  Receive Date: 20130927
  Receipt Date: 20160105
  Transmission Date: 20160526
  Serious: Yes (Hospitalization, Other)
  Sender: FDA-Public Use
  Company Number: US-BAYER-2013-116297

PATIENT
  Age: 31 Year
  Sex: Female
  Weight: 62.59 kg

DRUGS (1)
  1. MIRENA [Suspect]
     Active Substance: LEVONORGESTREL
     Indication: CONTRACEPTION
     Dosage: 20 MCG/24HR, CONT
     Route: 015
     Dates: start: 20130422, end: 20131011

REACTIONS (7)
  - Abdominal pain lower [Recovered/Resolved]
  - Uterine perforation [Recovered/Resolved]
  - Emotional distress [None]
  - Injury [Recovered/Resolved]
  - Adhesion [None]
  - Device issue [Recovered/Resolved]
  - Vaginal haemorrhage [None]

NARRATIVE: CASE EVENT DATE: 201309
